FAERS Safety Report 19355527 (Version 1)
Quarter: 2021Q2

REPORT INFORMATION
  Report Type: Spontaneous
  Country: US (occurrence: US)
  Receive Date: 20210531
  Receipt Date: 20210531
  Transmission Date: 20210717
  Serious: Yes (Other)
  Sender: FDA-Public Use
  Company Number: US-NAPPMUNDI-USA-2020-0151587

PATIENT
  Sex: Male
  Weight: 79.37 kg

DRUGS (3)
  1. BUPRENORPHINE. [Concomitant]
     Active Substance: BUPRENORPHINE
     Indication: PAIN
     Dosage: 600 MCG, TWO DAY
     Route: 065
  2. OXYCODONE HCL TABLETS (91?490) [Suspect]
     Active Substance: OXYCODONE HYDROCHLORIDE
     Indication: PRODUCT USED FOR UNKNOWN INDICATION
     Dosage: UNKNOWN
     Route: 048
  3. HYDROCODONE BITARTRATE/ACETAMINOPHEN [Suspect]
     Active Substance: ACETAMINOPHEN\HYDROCODONE BITARTRATE
     Indication: PAIN
     Dosage: UNK
     Route: 048

REACTIONS (8)
  - Drug dependence [Unknown]
  - Decreased interest [Unknown]
  - Insomnia [Unknown]
  - Disturbance in attention [Unknown]
  - Drug withdrawal syndrome [Unknown]
  - Decreased activity [Unknown]
  - Fatigue [Unknown]
  - Constipation [Unknown]
